FAERS Safety Report 4920430-9 (Version None)
Quarter: 2006Q1

REPORT INFORMATION
  Report Type: 
  Country: None (occurrence: None)
  Receive Date: 20060223
  Receipt Date: 20051005
  Transmission Date: 20060701
  Serious: Yes (Hospitalization)
  Sender: FDA-Public Use
  Company Number: US-MERCK-0510USA04570

PATIENT
  Age: 52 Year
  Sex: Female
  Weight: 114 kg

DRUGS (6)
  1. VIOXX [Suspect]
     Indication: OSTEOARTHRITIS
     Route: 048
     Dates: start: 20000228, end: 20040101
  2. ZESTRIL [Concomitant]
     Route: 065
  3. GLUCOPHAGE [Concomitant]
     Route: 065
  4. GLUCOTROL [Concomitant]
     Route: 065
  5. HYDROCHLOROTHIAZIDE [Concomitant]
     Route: 065
  6. VIOXX [Suspect]
     Indication: PAIN
     Route: 048
     Dates: start: 20000228, end: 20040101

REACTIONS (6)
  - BACK PAIN [None]
  - CARDIOVASCULAR DISORDER [None]
  - CATARACT [None]
  - HYPERTENSION [None]
  - INTERVERTEBRAL DISC PROTRUSION [None]
  - SPINAL COLUMN STENOSIS [None]
